FAERS Safety Report 14519052 (Version 2)
Quarter: 2018Q1

REPORT INFORMATION
  Report Type: Spontaneous
  Country: US (occurrence: US)
  Receive Date: 20180212
  Receipt Date: 20180326
  Transmission Date: 20180509
  Serious: No
  Sender: FDA-Public Use
  Company Number: US-PFIZER INC-2018060820

PATIENT
  Age: 28 Year
  Sex: Female
  Weight: 63 kg

DRUGS (2)
  1. MARCAINE [Suspect]
     Active Substance: BUPIVACAINE HYDROCHLORIDE
     Indication: ANAESTHESIA
     Dosage: (1CC LIQUID)15 MG, SINGLE
     Route: 037
     Dates: start: 20180201, end: 20180201
  2. MIDAZOLAM [Concomitant]
     Active Substance: MIDAZOLAM HYDROCHLORIDE
     Indication: SEDATION
     Dosage: UNK
     Route: 042
     Dates: start: 20180201, end: 20180201

REACTIONS (1)
  - Drug ineffective [Recovered/Resolved with Sequelae]

NARRATIVE: CASE EVENT DATE: 20180201
